FAERS Safety Report 20559882 (Version 2)
Quarter: 2022Q2

REPORT INFORMATION
  Report Type: Spontaneous
  Country: US (occurrence: US)
  Receive Date: 20220307
  Receipt Date: 20220404
  Transmission Date: 20220721
  Serious: Yes (Other)
  Sender: FDA-Public Use
  Company Number: US-ALK-ABELLO A/S-2021AA005020

PATIENT

DRUGS (30)
  1. CHENOPODIUM ALBUM POLLEN [Suspect]
     Active Substance: CHENOPODIUM ALBUM POLLEN
     Indication: Skin test
  2. AMBROSIA ARTEMISIIFOLIA POLLEN\AMBROSIA TRIFIDA POLLEN [Suspect]
     Active Substance: AMBROSIA ARTEMISIIFOLIA POLLEN\AMBROSIA TRIFIDA POLLEN
     Indication: Skin test
  3. IVA ANNUA POLLEN [Suspect]
     Active Substance: IVA ANNUA POLLEN
     Indication: Skin test
  4. AMARANTHUS RETROFLEXUS POLLEN [Suspect]
     Active Substance: AMARANTHUS RETROFLEXUS POLLEN
     Indication: Skin test
  5. CYNODON DACTYLON POLLEN [Suspect]
     Active Substance: CYNODON DACTYLON POLLEN
     Indication: Skin test
  6. PHLEUM PRATENSE POLLEN [Suspect]
     Active Substance: PHLEUM PRATENSE POLLEN
     Indication: Skin test
  7. FRAXINUS AMERICANA POLLEN [Suspect]
     Active Substance: FRAXINUS AMERICANA POLLEN
     Indication: Skin test
  8. BETULA NIGRA POLLEN [Suspect]
     Active Substance: BETULA NIGRA POLLEN
     Indication: Skin test
  9. ACER NEGUNDO POLLEN [Suspect]
     Active Substance: ACER NEGUNDO POLLEN
     Indication: Skin test
  10. POPULUS DELTOIDES POLLEN [Suspect]
     Active Substance: POPULUS DELTOIDES POLLEN
     Indication: Skin test
  11. ULMUS AMERICANA POLLEN [Suspect]
     Active Substance: ULMUS AMERICANA POLLEN
     Indication: Skin test
  12. CARYA OVATA POLLEN [Suspect]
     Active Substance: CARYA OVATA POLLEN
     Indication: Skin test
  13. MORUS RUBRA POLLEN [Suspect]
     Active Substance: MORUS RUBRA POLLEN
     Indication: Skin test
  14. QUERCUS ALBA POLLEN [Suspect]
     Active Substance: QUERCUS ALBA POLLEN
     Indication: Skin test
  15. PLATANUS OCCIDENTALIS POLLEN [Suspect]
     Active Substance: PLATANUS OCCIDENTALIS POLLEN
     Indication: Skin test
  16. DERMATOPHAGOIDES PTERONYSSINUS [Suspect]
     Active Substance: DERMATOPHAGOIDES PTERONYSSINUS
     Indication: Skin test
  17. DERMATOPHAGOIDES FARINAE [Suspect]
     Active Substance: DERMATOPHAGOIDES FARINAE
     Indication: Skin test
  18. ALTERNARIA ALTERNATA [Suspect]
     Active Substance: ALTERNARIA ALTERNATA
     Indication: Skin test
  19. ASPERGILLUS FUMIGATUS [Suspect]
     Active Substance: ASPERGILLUS FUMIGATUS
     Indication: Skin test
  20. COCHLIOBOLUS SATIVUS [Suspect]
     Active Substance: COCHLIOBOLUS SATIVUS
     Indication: Skin test
  21. CLADOSPORIUM CLADOSPORIOIDES [Suspect]
     Active Substance: CLADOSPORIUM CLADOSPORIOIDES
     Indication: Skin test
  22. GIBBERELLA ZEAE [Suspect]
     Active Substance: GIBBERELLA ZEAE
     Indication: Skin test
  23. MUCOR PLUMBEUS [Suspect]
     Active Substance: MUCOR PLUMBEUS
     Indication: Skin test
  24. PENICILLIUM NOTATUM [Suspect]
     Active Substance: PENICILLIUM CHRYSOGENUM VAR. CHRYSOGENUM
     Indication: Skin test
  25. FELIS CATUS HAIR [Suspect]
     Active Substance: FELIS CATUS HAIR
     Indication: Skin test
  26. CANIS LUPUS FAMILIARIS SKIN [Suspect]
     Active Substance: CANIS LUPUS FAMILIARIS SKIN
     Indication: Skin test
  27. MUS MUSCULUS SKIN [Suspect]
     Active Substance: MUS MUSCULUS SKIN
     Indication: Skin test
  28. BLATTELLA GERMANICA\PERIPLANETA AMERICANA [Suspect]
     Active Substance: BLATTELLA GERMANICA\PERIPLANETA AMERICANA
     Indication: Skin test
  29. JUNIPERUS VIRGINIANA POLLEN [Suspect]
     Active Substance: JUNIPERUS VIRGINIANA POLLEN
     Indication: Skin test
  30. EPICOCCUM NIGRUM [Suspect]
     Active Substance: EPICOCCUM NIGRUM
     Indication: Skin test

REACTIONS (1)
  - Anaphylactic reaction [Recovered/Resolved]

NARRATIVE: CASE EVENT DATE: 20211220
